FAERS Safety Report 4849082-3 (Version None)
Quarter: 2005Q4

REPORT INFORMATION
  Report Type: 
  Country: None (occurrence: None)
  Receive Date: 20051209
  Receipt Date: 20050928
  Transmission Date: 20060501
  Serious: Yes (Other)
  Sender: FDA-Public Use
  Company Number: 2005PK01783

PATIENT
  Age: 581 Month
  Sex: Female
  Weight: 61 kg

DRUGS (3)
  1. TAMOXIFEN [Suspect]
     Indication: BREAST CANCER FEMALE
     Route: 048
     Dates: start: 20021001, end: 20050301
  2. TAMOXIFEN [Suspect]
     Dates: start: 20050401
  3. ARIMIDEX [Concomitant]
     Indication: BREAST CANCER FEMALE
     Dates: start: 20050301, end: 20050401

REACTIONS (1)
  - OPTIC ATROPHY [None]
